FAERS Safety Report 6038401-0 (Version None)
Quarter: 2009Q1

REPORT INFORMATION
  Report Type: 
  Country: None (occurrence: None)
  Receive Date: 20090115
  Receipt Date: 20081229
  Transmission Date: 20090719
  Serious: No
  Sender: FDA-Public Use
  Company Number: US-BAYER-200814991BCC

PATIENT
  Age: 74 Year
  Sex: Female
  Weight: 64 kg

DRUGS (9)
  1. ALEVE (CAPLET) [Suspect]
     Indication: BONE PAIN
     Dosage: TOTAL DAILY DOSE: 880 MG  UNIT DOSE: 220 MG
     Dates: start: 20080101
  2. ALEVE (CAPLET) [Suspect]
     Dosage: UNIT DOSE: 220 MG
     Dates: start: 20081223, end: 20081226
  3. ALEVE (CAPLET) [Suspect]
     Dosage: UNIT DOSE: 220 MG
     Dates: start: 20081223, end: 20081226
  4. ALEVE (CAPLET) [Suspect]
     Dosage: TOTAL DAILY DOSE: 220 MG  UNIT DOSE: 220 MG
     Dates: start: 20081227
  5. DARVOCET [Concomitant]
  6. FOSAMAX PLUS D [Concomitant]
  7. RAMIPRIL [Concomitant]
  8. CENTRUM SILVER [Concomitant]
  9. LOVAZA [Concomitant]

REACTIONS (1)
  - ABDOMINAL PAIN UPPER [None]
